FAERS Safety Report 7620704-7 (Version None)
Quarter: 2011Q3

REPORT INFORMATION
  Report Type: 
  Country: None (occurrence: None)
  Receive Date: 20110719
  Receipt Date: 20110712
  Transmission Date: 20111222
  Serious: Yes (Death, Hospitalization)
  Sender: FDA-Public Use
  Company Number: US-GLAXOSMITHKLINE-A0936487A

PATIENT
  Age: 65 Year
  Sex: Female

DRUGS (8)
  1. DIGOXIN [Concomitant]
  2. COREG CR [Suspect]
     Indication: CARDIAC FAILURE CONGESTIVE
     Dosage: 80MG PER DAY
     Route: 048
     Dates: start: 20050101, end: 20110403
  3. CARVEDILOL [Suspect]
     Indication: CARDIAC FAILURE CONGESTIVE
     Dosage: 3.125MG TWICE PER DAY
     Route: 048
     Dates: start: 20110401
  4. COUMADIN [Concomitant]
  5. PACERONE [Concomitant]
  6. LASIX [Concomitant]
  7. CAPTOPRIL [Concomitant]
  8. SPIRONOLACTONE [Concomitant]

REACTIONS (4)
  - CARDIAC FAILURE CONGESTIVE [None]
  - ILL-DEFINED DISORDER [None]
  - EJECTION FRACTION DECREASED [None]
  - POST PROCEDURAL COMPLICATION [None]
